FAERS Safety Report 8262814 (Version 2)
Quarter: 2015Q4

REPORT INFORMATION
  Report Type: Spontaneous
  Country: US (occurrence: US)
  Receive Date: 20111124
  Receipt Date: 20151112
  Transmission Date: 20160305
  Serious: Yes (Other)
  Sender: FDA-Public Use
  Company Number: US-ROCHE-784241

PATIENT
  Age: 20 Year
  Sex: Male
  Weight: 99.88 kg

DRUGS (1)
  1. ACCUTANE [Suspect]
     Active Substance: ISOTRETINOIN
     Indication: ACNE
     Route: 048
     Dates: start: 200010, end: 200101

REACTIONS (5)
  - Colitis ulcerative [Unknown]
  - Haemorrhoids [Unknown]
  - Inflammatory bowel disease [Unknown]
  - Crohn^s disease [Unknown]
  - Stress [Unknown]

NARRATIVE: CASE EVENT DATE: 200603
